FAERS Safety Report 16740652 (Version 5)
Quarter: 2019Q4

REPORT INFORMATION
  Report Type: Spontaneous
  Country: US (occurrence: US)
  Receive Date: 20190826
  Receipt Date: 20191122
  Transmission Date: 20200122
  Serious: No
  Sender: FDA-Public Use
  Company Number: US-PFIZER INC-2019364505

PATIENT
  Age: 38 Year
  Sex: Male
  Weight: 89.36 kg

DRUGS (4)
  1. SOMAVERT [Suspect]
     Active Substance: PEGVISOMANT
     Indication: ACROMEGALY
     Dosage: 20 MG, DAILY (20 MG UNDER THE SKIN )
     Route: 058
     Dates: start: 20180701
  2. DEXAMETHASONE. [Concomitant]
     Active Substance: DEXAMETHASONE
     Dosage: UNK(0.5 MG/5ML ELIXIR)
  3. METFORMIN HCL [Concomitant]
     Active Substance: METFORMIN HYDROCHLORIDE
     Dosage: 1000 MG, UNK
  4. SOMAVERT [Suspect]
     Active Substance: PEGVISOMANT
     Indication: GIGANTISM
     Dosage: 20 MG, DAILY
     Dates: start: 20180716

REACTIONS (2)
  - Constipation [Unknown]
  - Injection site bruising [Unknown]
